FAERS Safety Report 9264741 (Version 1)
Quarter: 2013Q2

REPORT INFORMATION
  Report Type: Spontaneous
  Country: US (occurrence: None)
  Receive Date: 20130429
  Receipt Date: 20130429
  Transmission Date: 20140414
  Serious: No
  Sender: FDA-Public Use
  Company Number: None

PATIENT
  Age: 58 Year
  Sex: Female

DRUGS (8)
  1. AUBAGIO [Suspect]
     Indication: MULTIPLE SCLEROSIS
     Dosage: AUBAGIO 14MG, DAILY, ORAL
     Route: 048
     Dates: start: 20130214, end: 20130410
  2. LISINOPRIL [Concomitant]
  3. HYDROCHLOROTHIAZIDE [Concomitant]
  4. CITOLPRAM [Concomitant]
  5. BACLOFEN [Concomitant]
  6. OMEPRAZOLE [Concomitant]
  7. VICODIN [Concomitant]
  8. TRAMADOL [Concomitant]

REACTIONS (1)
  - Alanine aminotransferase increased [None]
